FAERS Safety Report 14595423 (Version 2)
Quarter: 2018Q1

REPORT INFORMATION
  Report Type: Spontaneous
  Country: HU (occurrence: HU)
  Receive Date: 20180302
  Receipt Date: 20180309
  Transmission Date: 20180509
  Serious: Yes (Other)
  Sender: FDA-Public Use
  Company Number: HU-TEVA-2018-HU-865028

PATIENT
  Age: 18 Year
  Sex: Female

DRUGS (13)
  1. DEXAMETHASONE. [Concomitant]
     Active Substance: DEXAMETHASONE
     Indication: OCULAR ROSACEA
     Route: 065
  2. METRONIDAZOLE. [Concomitant]
     Active Substance: METRONIDAZOLE
     Indication: OCULAR ROSACEA
     Route: 065
  3. FLUOROMETHOLONE. [Concomitant]
     Active Substance: FLUOROMETHOLONE
     Indication: OCULAR ROSACEA
     Route: 065
  4. BETAMETHASONE. [Concomitant]
     Active Substance: BETAMETHASONE
     Route: 065
  5. ZINC ACETATE [Suspect]
     Active Substance: ZINC ACETATE
     Indication: OCULAR ROSACEA
     Route: 065
  6. DOXYCYCLINE. [Concomitant]
     Active Substance: DOXYCYCLINE
     Indication: OCULAR ROSACEA
     Route: 065
  7. FUSIDIC ACID [Concomitant]
     Active Substance: FUSIDIC ACID
     Indication: OCULAR ROSACEA
     Route: 065
  8. RETINOL PALMITATE [Concomitant]
     Indication: OCULAR ROSACEA
     Route: 065
  9. INDOMETACIN [Concomitant]
     Active Substance: INDOMETHACIN
     Indication: OCULAR ROSACEA
     Route: 065
  10. TOBRAMYCIN. [Concomitant]
     Active Substance: TOBRAMYCIN
     Indication: OCULAR ROSACEA
     Route: 065
  11. ERYTHROMYCIN. [Concomitant]
     Active Substance: ERYTHROMYCIN
     Indication: OCULAR ROSACEA
     Route: 065
  12. OXYTETRACYCLINE [Concomitant]
     Active Substance: OXYTETRACYCLINE
     Indication: OCULAR ROSACEA
     Route: 065
  13. TETRACYCLINE [Concomitant]
     Active Substance: TETRACYCLINE
     Indication: OCULAR ROSACEA
     Route: 065

REACTIONS (5)
  - Exposure during pregnancy [Unknown]
  - Visual impairment [Recovered/Resolved]
  - Off label use [Unknown]
  - Corneal neovascularisation [Recovered/Resolved]
  - Corneal perforation [Recovered/Resolved]
